FAERS Safety Report 5147867-X (Version None)
Quarter: 2006Q4

REPORT INFORMATION
  Report Type: 
  Country: None (occurrence: None)
  Receive Date: 20061110
  Receipt Date: 20061027
  Transmission Date: 20070319
  Serious: Yes (Hospitalization)
  Sender: FDA-Public Use
  Company Number: PHNU2006DE03600

PATIENT
  Age: 65 Year
  Sex: Male

DRUGS (5)
  1. UV-A LIGHT [Concomitant]
     Dosage: TWO APPLICATIONS
  2. CARMEN [Concomitant]
  3. VALSARTAN [Concomitant]
     Route: 048
     Dates: start: 20061001
  4. VALSARTAN [Concomitant]
     Dosage: 0.25 TABLET IN THE MORNING
     Route: 048
     Dates: start: 20061001
  5. CO-DIOVAN [Suspect]
     Indication: HYPERTENSION
     Route: 048
     Dates: start: 20050101, end: 20061001

REACTIONS (2)
  - ECZEMA [None]
  - PHOTOSENSITIVITY REACTION [None]
